FAERS Safety Report 15903209 (Version 1)
Quarter: 2019Q1

REPORT INFORMATION
  Report Type: Spontaneous
  Country: JP (occurrence: JP)
  Receive Date: 20190202
  Receipt Date: 20190202
  Transmission Date: 20190417
  Serious: Yes (Death, Hospitalization)
  Sender: FDA-Public Use
  Company Number: PHHY2019JP022915

PATIENT
  Age: 68 Year
  Sex: Female

DRUGS (1)
  1. METHOTREXATE. [Suspect]
     Active Substance: METHOTREXATE
     Indication: RHEUMATOID ARTHRITIS
     Route: 065

REACTIONS (6)
  - Plasmablastic lymphoma [Fatal]
  - Leukocytosis [Fatal]
  - Stomatitis [Fatal]
  - Dyspnoea [Fatal]
  - Abdominal pain upper [Fatal]
  - Thrombocytopenia [Fatal]
